FAERS Safety Report 17942437 (Version 2)
Quarter: 2020Q3

REPORT INFORMATION
  Report Type: Spontaneous
  Country: ES (occurrence: ES)
  Receive Date: 20200625
  Receipt Date: 20200713
  Transmission Date: 20201103
  Serious: Yes (Other)
  Sender: FDA-Public Use
  Company Number: ES-AUROBINDO-AUR-APL-2020-030518

PATIENT
  Age: 51 Year
  Sex: Female
  Weight: 63 kg

DRUGS (7)
  1. 5?FLUOROURACIL [Suspect]
     Active Substance: FLUOROURACIL
     Dosage: 660 MILLIGRAM, EVERY 2 WEEKS
     Route: 042
     Dates: start: 20191204
  2. 5?FLUOROURACIL [Suspect]
     Active Substance: FLUOROURACIL
     Indication: COLORECTAL CANCER
     Dosage: 660 MILLIGRAM, EVERY 2 WEEKS
     Route: 040
     Dates: start: 20191204
  3. 5?FLUOROURACIL [Suspect]
     Active Substance: FLUOROURACIL
     Dosage: 3900 MILLIGRAM, EVERY 2 WEEK
     Route: 042
     Dates: start: 20191204
  4. DOXYCYCLINE. [Concomitant]
     Active Substance: DOXYCYCLINE
     Indication: RASH
     Dosage: 10 MILLIGRAM, ONCE A DAY
     Route: 048
     Dates: start: 20191205
  5. PANITUMUMAB [Suspect]
     Active Substance: PANITUMUMAB
     Indication: COLORECTAL CANCER
     Dosage: 390 MILLIGRAM, EVERY 2 WEEKS
     Route: 042
     Dates: start: 20191204
  6. FOLINIC ACID [Concomitant]
     Active Substance: LEUCOVORIN
     Indication: COLORECTAL CANCER
     Dosage: 660 MILLIGRAM, EVERY 2 WEEK
     Route: 042
     Dates: start: 20191204
  7. OXALIPLATIN. [Suspect]
     Active Substance: OXALIPLATIN
     Indication: COLORECTAL CANCER
     Dosage: 140 MILLIGRAM, EVERY 2 WEEKS
     Route: 042
     Dates: start: 20191204

REACTIONS (4)
  - Growth of eyelashes [Not Recovered/Not Resolved]
  - Hypertrichosis [Not Recovered/Not Resolved]
  - Rash [Not Recovered/Not Resolved]
  - Thrombocytopenia [Not Recovered/Not Resolved]

NARRATIVE: CASE EVENT DATE: 20200608
